FAERS Safety Report 17340096 (Version 1)
Quarter: 2020Q1

REPORT INFORMATION
  Report Type: Spontaneous
  Country: FR (occurrence: FR)
  Receive Date: 20200129
  Receipt Date: 20200129
  Transmission Date: 20200409
  Serious: Yes (Other)
  Sender: FDA-Public Use
  Company Number: FR-PFIZER INC-2020035938

PATIENT
  Age: 55 Year
  Sex: Female
  Weight: 47 kg

DRUGS (3)
  1. FLUOROURACILE ACCORD [Suspect]
     Active Substance: FLUOROURACIL
     Indication: PANCREATIC CARCINOMA
     Dosage: 4325 MG, EVERY 2 WEEKS
     Route: 042
     Dates: start: 20190801
  2. OXALIPLATINE ACCORD [Suspect]
     Active Substance: OXALIPLATIN
     Indication: PANCREATIC CARCINOMA
     Dosage: 132 MG, EVERY 2 WEEKS
     Route: 042
     Dates: start: 20190801, end: 20191205
  3. IRINOTECAN HCL [Suspect]
     Active Substance: IRINOTECAN HYDROCHLORIDE
     Indication: PANCREATIC CARCINOMA
     Dosage: 280 MG, EVERY 2 WEEKS
     Route: 042
     Dates: start: 20190801

REACTIONS (1)
  - Neuropathy peripheral [Not Recovered/Not Resolved]

NARRATIVE: CASE EVENT DATE: 201908
